FAERS Safety Report 18291280 (Version 5)
Quarter: 2020Q4

REPORT INFORMATION
  Report Type: Report from Study
  Country: US (occurrence: US)
  Receive Date: 20200921
  Receipt Date: 20201119
  Transmission Date: 20210113
  Serious: Yes (Hospitalization, Other)
  Sender: FDA-Public Use
  Company Number: US-JNJFOC-A-NJ2019-197947

PATIENT
  Age: 84 Year
  Sex: Female
  Weight: 74.46 kg

DRUGS (28)
  1. UPTRAVI [Suspect]
     Active Substance: SELEXIPAG
     Route: 048
  2. GLIPIZIDE. [Suspect]
     Active Substance: GLIPIZIDE
     Indication: PRODUCT USED FOR UNKNOWN INDICATION
     Route: 065
  3. ARICEPT [Concomitant]
     Active Substance: DONEPEZIL HYDROCHLORIDE
     Route: 048
     Dates: start: 20190215
  4. OPSUMIT [Suspect]
     Active Substance: MACITENTAN
     Route: 048
     Dates: start: 20190617
  5. UPTRAVI [Suspect]
     Active Substance: SELEXIPAG
     Dosage: 200 MCG, BID
     Route: 048
  6. UPTRAVI [Suspect]
     Active Substance: SELEXIPAG
     Dosage: 600 MCG, BID
     Route: 048
  7. ZOLOFT [Concomitant]
     Active Substance: SERTRALINE HYDROCHLORIDE
     Route: 048
  8. OPSUMIT [Suspect]
     Active Substance: MACITENTAN
     Indication: PULMONARY ARTERIAL HYPERTENSION
     Dosage: 10 MG, QD
     Route: 048
  9. PEPCID [Concomitant]
     Active Substance: FAMOTIDINE
     Route: 048
     Dates: start: 20200917
  10. LASIX [Concomitant]
     Active Substance: FUROSEMIDE
     Route: 048
  11. COMBIVENT [Concomitant]
     Active Substance: ALBUTEROL SULFATE\IPRATROPIUM BROMIDE
     Dates: start: 20200916
  12. MEGACE [Concomitant]
     Active Substance: MEGESTROL ACETATE
     Route: 048
     Dates: start: 20190207
  13. BYSTOLIC [Concomitant]
     Active Substance: NEBIVOLOL HYDROCHLORIDE
     Route: 048
  14. ZYRTEC [Concomitant]
     Active Substance: CETIRIZINE HYDROCHLORIDE
     Route: 048
  15. SILDENAFIL CITRATE. [Concomitant]
     Active Substance: SILDENAFIL CITRATE
  16. UPTRAVI [Suspect]
     Active Substance: SELEXIPAG
     Dosage: 800 MCG, BID
     Route: 048
  17. UPTRAVI [Suspect]
     Active Substance: SELEXIPAG
     Dosage: 400 MCG, BID
     Route: 048
  18. ACETAMINOPHEN. [Concomitant]
     Active Substance: ACETAMINOPHEN
     Route: 048
     Dates: start: 20200916
  19. ALLOPURINOL. [Concomitant]
     Active Substance: ALLOPURINOL
     Dates: start: 20200520
  20. ASPRIN [Concomitant]
     Active Substance: ASPIRIN
     Route: 048
  21. LUMIGAN [Concomitant]
     Active Substance: BIMATOPROST
     Dates: start: 20170929
  22. MARINOL [Concomitant]
     Active Substance: DRONABINOL
     Route: 048
  23. LEXAPRO [Concomitant]
     Active Substance: ESCITALOPRAM OXALATE
     Route: 048
  24. JUVEN [Concomitant]
     Active Substance: .BETA.-HYDROXYISOVALERIC ACID\ARGININE\GLUTAMINE
     Dosage: 1 PACKET 2X/DAY
     Dates: start: 20200916
  25. UPTRAVI [Suspect]
     Active Substance: SELEXIPAG
     Indication: PULMONARY ARTERIAL HYPERTENSION
     Dosage: 1000 MCG, BID
     Route: 048
  26. ALPHAGAN P [Concomitant]
     Active Substance: BRIMONIDINE TARTRATE
     Dosage: 1 DROP INTO BOTH EYES (TWO) TIMES DAILY
  27. FERATAB [Concomitant]
     Dosage: WITH MEALS
     Route: 048
  28. XALATAN [Concomitant]
     Active Substance: LATANOPROST
     Dosage: 1 DROP/NIGHTLY

REACTIONS (27)
  - Hypoxia [Unknown]
  - Pancreatitis [Unknown]
  - Renal disorder [Unknown]
  - Dehydration [Unknown]
  - Decreased appetite [Unknown]
  - Product prescribing error [Recovering/Resolving]
  - Acute kidney injury [Unknown]
  - Hypernatraemia [Unknown]
  - Speech disorder [Unknown]
  - Diarrhoea [Unknown]
  - Urinary incontinence [Unknown]
  - Erythema [Unknown]
  - Peripheral swelling [Unknown]
  - Oxygen saturation decreased [Recovering/Resolving]
  - Blood glucose decreased [Recovering/Resolving]
  - Pneumonia [Recovered/Resolved]
  - Urinary tract infection [Unknown]
  - Vision blurred [Recovered/Resolved]
  - Fluid retention [Unknown]
  - Dementia [Unknown]
  - Mental status changes [Unknown]
  - Polyuria [Unknown]
  - Lethargy [Unknown]
  - Constipation [Unknown]
  - Headache [Unknown]
  - Anal incontinence [Unknown]
  - Unevaluable event [Unknown]

NARRATIVE: CASE EVENT DATE: 20200909
